FAERS Safety Report 9313120 (Version 2)
Quarter: 2013Q3

REPORT INFORMATION
  Report Type: Spontaneous
  Country: US (occurrence: US)
  Receive Date: 20130528
  Receipt Date: 20130828
  Transmission Date: 20140515
  Serious: No
  Sender: FDA-Public Use
  Company Number: US-ABBOTT-13P-163-1066540-00

PATIENT
  Age: 62 Year
  Sex: Male
  Weight: 96.25 kg

DRUGS (11)
  1. ANDROGEL [Suspect]
     Indication: BLOOD TESTOSTERONE DECREASED
     Dosage: ONE PUMP ACTUATION
     Dates: start: 201303, end: 201303
  2. ANDROGEL [Suspect]
     Dosage: TWO PUMP ACTUATIONS
     Dates: start: 201303
  3. POTASSIUM [Concomitant]
     Indication: SUPPLEMENTATION THERAPY
  4. FUROSEMIDE [Concomitant]
     Indication: PRODUCT USED FOR UNKNOWN INDICATION
  5. ZAROXOLYN [Concomitant]
     Indication: PRODUCT USED FOR UNKNOWN INDICATION
  6. BABY ASPIRIN [Concomitant]
     Indication: PRODUCT USED FOR UNKNOWN INDICATION
  7. ALLERGY MEDICATION [Concomitant]
     Indication: PRODUCT USED FOR UNKNOWN INDICATION
  8. MIRALAX [Concomitant]
     Indication: CONSTIPATION PROPHYLAXIS
  9. NITROGLYCERIN [Concomitant]
     Indication: CHEST PAIN
  10. NITROGLYCERIN [Concomitant]
     Indication: CHEST PAIN
  11. OXYFAST [Concomitant]
     Indication: BACK PAIN

REACTIONS (3)
  - Chest pain [Recovered/Resolved]
  - Pain in jaw [Recovered/Resolved]
  - Musculoskeletal pain [Recovered/Resolved]
